FAERS Safety Report 9300700 (Version 1)
Quarter: 2013Q1

REPORT INFORMATION
  Report Type: Spontaneous
  Country: US (occurrence: None)
  Receive Date: 20130107
  Receipt Date: 20130107
  Transmission Date: 20140127
  Serious: Yes (Other)
  Sender: FDA-Public Use
  Company Number: PHEH2012US022080

PATIENT
  Age: 58 Year
  Sex: Female
  Weight: 86.2 kg

DRUGS (10)
  1. GILENYA [Suspect]
     Indication: MULTIPLE SCLEROSIS RELAPSE
     Route: 048
     Dates: start: 20110909, end: 20121025
  2. BACLOFEN (BACLOFEN) [Concomitant]
  3. CALCIUM (CALCIUM) [Concomitant]
  4. MULTIVITAMINS (ASCORBIC ACID, ERGOCALCIFEROL, FOLIC ACID, NICOTINAMIDE, PANTHENOL, RETINOL, RIBOFLAVIN, THIAMINE HYDROCHLORIDE) [Concomitant]
  5. VESICARE (SOLIFENACIN SUCCINATE) [Concomitant]
  6. ERGOCALCIFEROL (ERGOCALCIFEROL) [Concomitant]
  7. TYLENOL (PARACETAMOL) [Concomitant]
  8. PHENERGAN (CEPHAELIS SPP. FLUID EXTRACT, CHLOROFORM, CITRIC ACID, DEXTROMETHORPHAN HYDROBROMIDE, PROMETHAZINE HYDROCHLORIDE, SOIDUM CITRATE, SULFOGAIACOL) [Concomitant]
  9. LORTAB (HYDROCHLORIDE, SODIUM CITRATE, SULFOGAIACOL) [Concomitant]
  10. TRAMADOL (TRAMADOL) [Concomitant]

REACTIONS (1)
  - Macular oedema [None]
